FAERS Safety Report 24467593 (Version 1)
Quarter: 2024Q4

REPORT INFORMATION
  Report Type: Report from Study
  Country: US (occurrence: US)
  Receive Date: 20241018
  Receipt Date: 20241018
  Transmission Date: 20250114
  Serious: No
  Sender: ROCHE
  Company Number: US-ROCHE-3555251

PATIENT

DRUGS (12)
  1. XOLAIR [Suspect]
     Active Substance: OMALIZUMAB
     Indication: Mast cell activation syndrome
     Route: 065
  2. TYLENOL [Concomitant]
     Active Substance: ACETAMINOPHEN
  3. VITAMIN C [Concomitant]
     Active Substance: ASCORBIC ACID
  4. ERGOCALCIFEROL [Concomitant]
     Active Substance: ERGOCALCIFEROL
  5. QUERCITIN [Concomitant]
  6. LUTEOLIN [Concomitant]
     Active Substance: LUTEOLIN
  7. DESLORATADINE [Concomitant]
     Active Substance: DESLORATADINE
  8. IMATINIB [Concomitant]
     Active Substance: IMATINIB
  9. MONTELUKAST [Concomitant]
     Active Substance: MONTELUKAST
  10. FAMOTIDINE [Concomitant]
     Active Substance: FAMOTIDINE
  11. PINDOLOL [Concomitant]
     Active Substance: PINDOLOL
  12. CROMOLYN SODIUM [Concomitant]
     Active Substance: CROMOLYN SODIUM

REACTIONS (11)
  - Pain [Unknown]
  - Hyperhidrosis [Unknown]
  - Fatigue [Unknown]
  - Arthralgia [Unknown]
  - Gastrointestinal disorder [Unknown]
  - Headache [Unknown]
  - Oropharyngeal pain [Unknown]
  - Tension headache [Unknown]
  - Drug ineffective [Unknown]
  - Anxiety [Unknown]
  - Depression [Unknown]
